FAERS Safety Report 15591607 (Version 1)
Quarter: 2018Q4

REPORT INFORMATION
  Report Type: Spontaneous
  Country: US (occurrence: US)
  Receive Date: 20181106
  Receipt Date: 20181106
  Transmission Date: 20190205
  Serious: No
  Sender: FDA-Public Use
  Company Number: US-MIST-TIR-2018-0550

PATIENT
  Age: 57 Year
  Sex: Female
  Weight: 90.8 kg

DRUGS (7)
  1. TIROSINT [Suspect]
     Active Substance: LEVOTHYROXINE SODIUM
     Dosage: 100MCG DAILY
     Route: 048
     Dates: start: 2018, end: 20180521
  2. LORAZEPAM. [Concomitant]
     Active Substance: LORAZEPAM
     Indication: VESTIBULAR MIGRAINE
     Dosage: 0.25MG TAKEN AS NEEDED
  3. TIROSINT [Suspect]
     Active Substance: LEVOTHYROXINE SODIUM
     Dosage: 100MCG DAILY
     Route: 048
     Dates: start: 20180524
  4. TIROSINT [Suspect]
     Active Substance: LEVOTHYROXINE SODIUM
     Indication: HYPOTHYROIDISM
     Dosage: 112MCG DAILY
     Route: 048
     Dates: start: 2017, end: 2017
  5. TIROSINT [Suspect]
     Active Substance: LEVOTHYROXINE SODIUM
     Indication: HYPOTHYROIDISM
     Dosage: 100MCG DAILY
     Route: 048
  6. MELATONIN [Concomitant]
     Active Substance: MELATONIN
     Indication: PRODUCT USED FOR UNKNOWN INDICATION
     Dosage: 3MG EVERY NIGHT
  7. IBUPROFEN. [Concomitant]
     Active Substance: IBUPROFEN
     Indication: VESTIBULAR MIGRAINE
     Dosage: 200MG TAKEN AS NEEDED

REACTIONS (14)
  - Vestibular migraine [Unknown]
  - Irritability [Unknown]
  - Psychomotor hyperactivity [Unknown]
  - Fatigue [Unknown]
  - Agitation [Recovered/Resolved]
  - Product quality issue [Unknown]
  - Palpitations [Unknown]
  - Stress [Unknown]
  - Fear [Unknown]
  - Anxiety [Recovered/Resolved]
  - Tinnitus [Unknown]
  - Insomnia [Recovered/Resolved]
  - Procedural site reaction [Recovered/Resolved]
  - Feeling abnormal [Unknown]

NARRATIVE: CASE EVENT DATE: 2017
